FAERS Safety Report 5515603-0 (Version None)
Quarter: 2007Q4

REPORT INFORMATION
  Report Type: 
  Country: None (occurrence: None)
  Receive Date: 20071113
  Receipt Date: 20070626
  Transmission Date: 20080405
  Serious: No
  Sender: FDA-Public Use
  Company Number: A0660228A

PATIENT
  Age: 83 Year
  Sex: Female

DRUGS (7)
  1. COREG [Suspect]
     Indication: HYPERTENSION
     Route: 048
     Dates: start: 20050101, end: 20050101
  2. IMDUR [Concomitant]
  3. PLAVIX [Concomitant]
  4. CARDURA [Concomitant]
  5. BENICAR [Concomitant]
  6. LIPITOR [Concomitant]
  7. NIACIN [Concomitant]

REACTIONS (1)
  - DIZZINESS [None]
